FAERS Safety Report 9326075 (Version 1)
Quarter: 2013Q2

REPORT INFORMATION
  Report Type: Spontaneous
  Country: US (occurrence: None)
  Receive Date: 20130603
  Receipt Date: 20130603
  Transmission Date: 20140414
  Serious: Yes (Other)
  Sender: FDA-Public Use
  Company Number: None

PATIENT
  Age: 61 Year
  Sex: Female
  Weight: 109.77 kg

DRUGS (1)
  1. QSYMIA [Suspect]

REACTIONS (7)
  - Drug effect decreased [None]
  - Fatigue [None]
  - Somnolence [None]
  - Nausea [None]
  - Headache [None]
  - Disturbance in attention [None]
  - Impaired driving ability [None]
